FAERS Safety Report 10068650 (Version 2)
Quarter: 2014Q2

REPORT INFORMATION
  Report Type: Spontaneous
  Country: FI (occurrence: FI)
  Receive Date: 20140409
  Receipt Date: 20140613
  Transmission Date: 20141212
  Serious: Yes (Hospitalization)
  Sender: FDA-Public Use
  Company Number: FI-GLAXOSMITHKLINE-B0984039A

PATIENT
  Age: 85 Year
  Sex: Female

DRUGS (3)
  1. REVOLADE [Suspect]
     Indication: IMMUNE THROMBOCYTOPENIC PURPURA
     Dosage: 50MG PER DAY
     Route: 065
     Dates: start: 20130902, end: 20131124
  2. PREDNISOLON [Concomitant]
     Dates: start: 20130722, end: 20140117
  3. IVIG [Concomitant]
     Dates: start: 20130826, end: 20130829

REACTIONS (1)
  - Pulmonary embolism [Unknown]
